FAERS Safety Report 7865787-4 (Version None)
Quarter: 2011Q4

REPORT INFORMATION
  Report Type: 
  Country: None (occurrence: None)
  Receive Date: 20111028
  Receipt Date: 20110223
  Transmission Date: 20120403
  Serious: No
  Sender: FDA-Public Use
  Company Number: US-GLAXOSMITHKLINE-A0915074A

PATIENT
  Age: 66 Year
  Sex: Female

DRUGS (5)
  1. DIABETES MEDICATION [Concomitant]
  2. ANTI-CHOLESTEROL MEDICATION [Concomitant]
  3. ADVAIR DISKUS 100/50 [Suspect]
     Indication: ASTHMA
     Dosage: 1PUFF PER DAY
     Route: 055
     Dates: start: 20101127
  4. ALLERGY MEDICATION [Concomitant]
  5. MEDICATION FOR HIGH BLOOD PRESSURE [Concomitant]

REACTIONS (2)
  - MENTAL IMPAIRMENT [None]
  - DYSPNOEA [None]
